FAERS Safety Report 4391015-0 (Version None)
Quarter: 2004Q2

REPORT INFORMATION
  Report Type: 
  Country: None (occurrence: None)
  Receive Date: 20040628
  Receipt Date: 20040611
  Transmission Date: 20050107
  Serious: Yes (Hospitalization)
  Sender: FDA-Public Use
  Company Number: 601321

PATIENT
  Age: 63 Year
  Sex: Female

DRUGS (10)
  1. POLYGAM S/D [Suspect]
     Indication: DERMATOMYOSITIS
     Dosage: 30 GM; QD; INTRAVENOUS
     Route: 042
     Dates: start: 20040607, end: 20040608
  2. PREDNISONE [Concomitant]
  3. NPH INSULIN [Concomitant]
  4. LASIX [Concomitant]
  5. VITAMIN CAP [Concomitant]
  6. PROTONIX [Concomitant]
  7. CALCIUM [Concomitant]
  8. CIPRO [Concomitant]
  9. TYLENOL [Concomitant]
  10. ANTIHISTAMINE [Concomitant]

REACTIONS (7)
  - ACTIVATED PARTIAL THROMBOPLASTIN TIME PROLONGED [None]
  - ANTI FACTOR XI ANTIBODY POSITIVE [None]
  - ASCITES [None]
  - AUTOIMMUNE HEPATITIS [None]
  - COAGULATION FACTOR XI LEVEL DECREASED [None]
  - HAEMOGLOBIN DECREASED [None]
  - POST PROCEDURAL DISCHARGE [None]
